FAERS Safety Report 24209824 (Version 5)
Quarter: 2024Q3

REPORT INFORMATION
  Report Type: Spontaneous
  Country: PT (occurrence: PT)
  Receive Date: 20240814
  Receipt Date: 20240930
  Transmission Date: 20241017
  Serious: Yes (Other)
  Sender: JOHNSON AND JOHNSON
  Company Number: PT-JNJFOC-20240813712

PATIENT
  Age: 59 Year
  Sex: Female

DRUGS (6)
  1. TOPAMAX [Suspect]
     Active Substance: TOPIRAMATE
     Indication: Alcohol withdrawal syndrome
     Route: 065
     Dates: start: 202110
  2. TIAPRIDE [Suspect]
     Active Substance: TIAPRIDE
     Indication: Alcohol withdrawal syndrome
     Route: 065
     Dates: start: 202110
  3. ESCITALOPRAM [Suspect]
     Active Substance: ESCITALOPRAM OXALATE
     Indication: Alcohol withdrawal syndrome
     Route: 065
     Dates: start: 202110
  4. LORAZEPAM [Suspect]
     Active Substance: LORAZEPAM
     Indication: Alcohol withdrawal syndrome
     Route: 065
     Dates: start: 202110
  5. DIAZEPAM [Suspect]
     Active Substance: DIAZEPAM
     Indication: Alcohol withdrawal syndrome
     Route: 065
     Dates: start: 202110
  6. AMISULPRIDE [Suspect]
     Active Substance: AMISULPRIDE
     Indication: Alcohol withdrawal syndrome
     Route: 065
     Dates: start: 202110

REACTIONS (2)
  - Torticollis [Unknown]
  - Off label use [Unknown]

NARRATIVE: CASE EVENT DATE: 20211001
